FAERS Safety Report 19447624 (Version 1)
Quarter: 2021Q2

REPORT INFORMATION
  Report Type: Spontaneous
  Country: US (occurrence: US)
  Receive Date: 20210622
  Receipt Date: 20210622
  Transmission Date: 20210717
  Serious: Yes (Other)
  Sender: FDA-Public Use
  Company Number: None

PATIENT
  Age: 13 Year
  Sex: Male

DRUGS (7)
  1. LITHIUM. [Concomitant]
     Active Substance: LITHIUM
  2. FLUOXETINE [Concomitant]
     Active Substance: FLUOXETINE HYDROCHLORIDE
  3. GUANFACINE. [Concomitant]
     Active Substance: GUANFACINE
  4. LAMOTRIGINE. [Concomitant]
     Active Substance: LAMOTRIGINE
  5. CLONIDINE. [Concomitant]
     Active Substance: CLONIDINE
  6. MAGNESIUM OXIDE. [Concomitant]
     Active Substance: MAGNESIUM OXIDE
  7. QUETIAPINE. [Suspect]
     Active Substance: QUETIAPINE
     Indication: DISRUPTIVE MOOD DYSREGULATION DISORDER
     Route: 048

REACTIONS (1)
  - Blood thyroid stimulating hormone increased [None]
